FAERS Safety Report 16889119 (Version 1)
Quarter: 2019Q4

REPORT INFORMATION
  Report Type: Spontaneous
  Country: US (occurrence: US)
  Receive Date: 20191007
  Receipt Date: 20191007
  Transmission Date: 20200122
  Serious: Yes (Hospitalization, Other)
  Sender: FDA-Public Use
  Company Number: US-SA-2019SA273051

PATIENT
  Age: 50 Year
  Sex: Female

DRUGS (1)
  1. PRALUENT [Suspect]
     Active Substance: ALIROCUMAB
     Indication: BLOOD CHOLESTEROL
     Dosage: UNK, QM
     Dates: start: 201907

REACTIONS (8)
  - Haemorrhage [Unknown]
  - Ulcer [Unknown]
  - Muscle spasms [Unknown]
  - Muscle twitching [Unknown]
  - Musculoskeletal pain [Recovered/Resolved]
  - Polyp [Unknown]
  - Precancerous cells present [Unknown]
  - Pain [Recovered/Resolved]
